FAERS Safety Report 4742356-6 (Version None)
Quarter: 2005Q3

REPORT INFORMATION
  Report Type: 
  Country: None (occurrence: None)
  Receive Date: 20050808
  Receipt Date: 20050721
  Transmission Date: 20060218
  Serious: Yes (Death)
  Sender: FDA-Public Use
  Company Number: USA050598812

PATIENT
  Age: 40 Year
  Sex: Female
  Weight: 70 kg

DRUGS (1)
  1. CYMBALTA [Suspect]
     Dosage: 60 MG

REACTIONS (6)
  - CARDIAC ARREST [None]
  - DRUG LEVEL INCREASED [None]
  - DRUG TOXICITY [None]
  - LOSS OF CONSCIOUSNESS [None]
  - MULTIPLE DRUG OVERDOSE [None]
  - RESPIRATORY ARREST [None]
